FAERS Safety Report 16532061 (Version 2)
Quarter: 2019Q3

REPORT INFORMATION
  Report Type: Spontaneous
  Country: JP (occurrence: JP)
  Receive Date: 20190704
  Receipt Date: 20190712
  Transmission Date: 20191004
  Serious: Yes (Other)
  Sender: FDA-Public Use
  Company Number: JP-PFIZER INC-2019272303

PATIENT

DRUGS (3)
  1. HALCION [Suspect]
     Active Substance: TRIAZOLAM
     Dosage: 0.25 MG, SINGLE
     Route: 048
     Dates: start: 20190104
  2. FLUMARIN [FLOMOXEF SODIUM] [Concomitant]
     Active Substance: FLOMOXEF SODIUM
     Indication: NASOPHARYNGITIS
     Dosage: UNK
     Route: 041
     Dates: start: 20190104
  3. CRAVIT [Concomitant]
     Active Substance: LEVOFLOXACIN
     Indication: NASOPHARYNGITIS
     Dosage: UNK

REACTIONS (3)
  - Amnesia [Unknown]
  - Road traffic accident [Unknown]
  - Abnormal behaviour [Unknown]

NARRATIVE: CASE EVENT DATE: 20190104
